FAERS Safety Report 4567771-5 (Version None)
Quarter: 2005Q1

REPORT INFORMATION
  Report Type: 
  Country: None (occurrence: None)
  Receive Date: 20050127
  Receipt Date: 20050121
  Transmission Date: 20050727
  Serious: Yes (Hospitalization)
  Sender: FDA-Public Use
  Company Number: 2005VX000078

PATIENT
  Age: 16 Year
  Sex: Female
  Weight: 55 kg

DRUGS (2)
  1. MESTINON [Suspect]
     Indication: MYASTHENIC SYNDROME
     Dosage: 60 MG; ORAL
     Route: 048
     Dates: start: 20041218
  2. TEGELINE (IMMUNOGLOBULIN HUMAN NORMAL) [Suspect]
     Indication: MYASTHENIC SYNDROME
     Dosage: 120 MG; INTRAVENOUS
     Route: 042
     Dates: start: 20041217, end: 20041218

REACTIONS (13)
  - BIOPSY BONE MARROW ABNORMAL [None]
  - BLOOD PRESSURE DIASTOLIC DECREASED [None]
  - CSF GLUCOSE INCREASED [None]
  - CSF TEST ABNORMAL [None]
  - HAEMOGLOBIN DECREASED [None]
  - HEADACHE [None]
  - HEART RATE INCREASED [None]
  - MENINGISM [None]
  - MUSCULOSKELETAL STIFFNESS [None]
  - PHOTOPHOBIA [None]
  - PROTHROMBIN TIME PROLONGED [None]
  - PYREXIA [None]
  - VOMITING [None]
